FAERS Safety Report 4604111-7 (Version None)
Quarter: 2005Q1

REPORT INFORMATION
  Report Type: 
  Country: None (occurrence: None)
  Receive Date: 20050309
  Receipt Date: 20050309
  Transmission Date: 20050727
  Serious: No
  Sender: FDA-Public Use
  Company Number: None

PATIENT
  Age: 35 Year
  Sex: Male
  Weight: 99.7913 kg

DRUGS (1)
  1. PURINETHOL [Suspect]
     Indication: CROHN'S DISEASE

REACTIONS (2)
  - LIVER FUNCTION TEST ABNORMAL [None]
  - PHARMACEUTICAL PRODUCT COMPLAINT [None]
